FAERS Safety Report 11763185 (Version 1)
Quarter: 2015Q4

REPORT INFORMATION
  Report Type: Spontaneous
  Country: US (occurrence: US)
  Receive Date: 20151120
  Receipt Date: 20151120
  Transmission Date: 20160304
  Serious: No
  Sender: FDA-Public Use
  Company Number: US-ELI_LILLY_AND_COMPANY-US201303001868

PATIENT
  Age: 57 Year
  Sex: Female
  Weight: 45.35 kg

DRUGS (2)
  1. FORTEO [Suspect]
     Active Substance: TERIPARATIDE
  2. FORTEO [Suspect]
     Active Substance: TERIPARATIDE
     Indication: OSTEOPOROSIS
     Dosage: UNK
     Dates: start: 20121105

REACTIONS (6)
  - Headache [Unknown]
  - Intentional product misuse [Unknown]
  - Urine calcium increased [Unknown]
  - Nausea [Unknown]
  - Urine abnormality [Unknown]
  - Underdose [Unknown]
